FAERS Safety Report 6135763-0 (Version None)
Quarter: 2009Q1

REPORT INFORMATION
  Report Type: 
  Country: None (occurrence: None)
  Receive Date: 20090327
  Receipt Date: 20090325
  Transmission Date: 20090719
  Serious: Yes (Death)
  Sender: FDA-Public Use
  Company Number: PHHY2008MX07948

PATIENT
  Age: 94 Year
  Sex: Female
  Weight: 56 kg

DRUGS (1)
  1. DIOVAN HCT [Suspect]
     Indication: HYPERTENSION
     Dosage: 1 TAB (160/25MG)/DAY
     Route: 048
     Dates: start: 19940501

REACTIONS (2)
  - DISEASE COMPLICATION [None]
  - RESPIRATORY FAILURE [None]
